FAERS Safety Report 15299535 (Version 1)
Quarter: 2018Q3

REPORT INFORMATION
  Report Type: Spontaneous
  Country: US (occurrence: US)
  Receive Date: 20180808
  Receipt Date: 20180808
  Transmission Date: 20181010
  Serious: Yes (Disabling, Other)
  Sender: FDA-Public Use
  Company Number: None

PATIENT
  Age: 58 Year
  Sex: Female
  Weight: 45.9 kg

DRUGS (17)
  1. LIDOCAINE. [Suspect]
     Active Substance: LIDOCAINE
     Indication: ARTHRITIS
  2. BOTOX [Concomitant]
     Active Substance: ONABOTULINUMTOXINA
  3. MULTI [Concomitant]
  4. VITAMIN C [Concomitant]
     Active Substance: ASCORBIC ACID
  5. LYSINE [Concomitant]
     Active Substance: LYSINE
  6. DEXAMETHASONE. [Suspect]
     Active Substance: DEXAMETHASONE
  7. MSM [Concomitant]
     Active Substance: DIMETHYL SULFONE
  8. OMEGA 3 [Concomitant]
     Active Substance: OMEGA-3 FATTY ACIDS
  9. XYFLAMEND [Concomitant]
  10. CANDASARTAN [Concomitant]
  11. BLOOD BUILDER [Concomitant]
  12. FLUTICASONE. [Concomitant]
     Active Substance: FLUTICASONE
  13. TURMERIC [Concomitant]
     Active Substance: HERBALS\TURMERIC
  14. CHONDROITN [Concomitant]
  15. GREAT LAKES COLLAGEN POWDER [Concomitant]
  16. LIDOCAINE. [Suspect]
     Active Substance: LIDOCAINE
     Indication: FACET JOINT BLOCK
  17. GLUCOSAMINE [Concomitant]
     Active Substance: GLUCOSAMINE

REACTIONS (11)
  - Psychomotor hyperactivity [None]
  - Dizziness [None]
  - Hypoaesthesia [None]
  - Aphasia [None]
  - Crying [None]
  - Tremor [None]
  - Hyperacusis [None]
  - Hypoaesthesia oral [None]
  - Insomnia [None]
  - Asthenia [None]
  - Gait disturbance [None]

NARRATIVE: CASE EVENT DATE: 20180726
